FAERS Safety Report 17063963 (Version 1)
Quarter: 2019Q4

REPORT INFORMATION
  Report Type: Spontaneous
  Country: DE (occurrence: DE)
  Receive Date: 20191122
  Receipt Date: 20191122
  Transmission Date: 20200122
  Serious: Yes (Hospitalization)
  Sender: FDA-Public Use
  Company Number: DE-NOVOPROD-697048

PATIENT
  Age: 18 Year
  Sex: Male

DRUGS (2)
  1. NOVORAPID [Suspect]
     Active Substance: INSULIN ASPART
     Dosage: UNK (NEW CARTRIDGE)
     Route: 058
  2. NOVORAPID [Suspect]
     Active Substance: INSULIN ASPART
     Indication: DIABETES MELLITUS
     Dosage: 106 IE DAILY DOSE
     Route: 058

REACTIONS (2)
  - Product leakage [Unknown]
  - Hyperglycaemic unconsciousness [Recovering/Resolving]

NARRATIVE: CASE EVENT DATE: 20191031
